FAERS Safety Report 13828176 (Version 1)
Quarter: 2017Q3

REPORT INFORMATION
  Report Type: Spontaneous
  Country: US (occurrence: US)
  Receive Date: 20170802
  Receipt Date: 20170802
  Transmission Date: 20171127
  Serious: No
  Sender: FDA-Public Use
  Company Number: None

PATIENT
  Age: 66 Year
  Sex: Male

DRUGS (1)
  1. EPCLUSA [Suspect]
     Active Substance: SOFOSBUVIR\VELPATASVIR
     Indication: CHRONIC HEPATITIS C
     Dosage: 400-100 QD PO
     Route: 048
     Dates: start: 20170613

REACTIONS (3)
  - Fatigue [None]
  - Decreased appetite [None]
  - Back pain [None]

NARRATIVE: CASE EVENT DATE: 20170613
